FAERS Safety Report 5834666-6 (Version None)
Quarter: 2008Q3

REPORT INFORMATION
  Report Type: 
  Country: None (occurrence: None)
  Receive Date: 20080805
  Receipt Date: 20080717
  Transmission Date: 20090109
  Serious: Yes (Other)
  Sender: FDA-Public Use
  Company Number: IE-ABBOTT-08P-229-0468086-00

PATIENT
  Sex: Female

DRUGS (1)
  1. ERYTHROCIN I.V. [Suspect]
     Indication: DRUG USE FOR UNKNOWN INDICATION
     Route: 040
     Dates: start: 20060101

REACTIONS (2)
  - ADMINISTRATION SITE PAIN [None]
  - DRUG ADMINISTRATION ERROR [None]
